FAERS Safety Report 6023166-9 (Version None)
Quarter: 2008Q4

REPORT INFORMATION
  Report Type: 
  Country: None (occurrence: None)
  Receive Date: 20081230
  Receipt Date: 20081222
  Transmission Date: 20090506
  Serious: Yes (Life-Threatening)
  Sender: FDA-Public Use
  Company Number: B0551520A

PATIENT
  Age: 86 Year
  Sex: Female

DRUGS (3)
  1. ARIXTRA [Suspect]
     Indication: DEEP VEIN THROMBOSIS
     Dosage: 5MG PER DAY
     Route: 058
     Dates: start: 20081127, end: 20081207
  2. RAMIPRIL [Concomitant]
  3. FRUSEMIDE [Concomitant]

REACTIONS (3)
  - ECCHYMOSIS [None]
  - HAEMORRHAGE [None]
  - PURPURA [None]
